FAERS Safety Report 12569951 (Version 2)
Quarter: 2016Q3

REPORT INFORMATION
  Report Type: Spontaneous
  Country: LB (occurrence: LB)
  Receive Date: 20160719
  Receipt Date: 20160818
  Transmission Date: 20161109
  Serious: Yes (Life-Threatening, Hospitalization, Other)
  Sender: FDA-Public Use
  Company Number: LB-PFIZER INC-2016342383

PATIENT
  Age: 54 Year
  Sex: Female

DRUGS (5)
  1. CIPROFLOXACIN. [Suspect]
     Active Substance: CIPROFLOXACIN
     Dosage: 400 MG, Q12 H
     Route: 042
  2. IMIPENEM [Suspect]
     Active Substance: IMIPENEM
     Indication: COLITIS
     Dosage: 500 MG, Q8 H
     Route: 042
  3. CIPROFLOXACIN. [Suspect]
     Active Substance: CIPROFLOXACIN
     Indication: COLITIS
     Dosage: 500 MG, Q12 H
     Route: 048
  4. VANCOMYCIN HCL [Suspect]
     Active Substance: VANCOMYCIN HYDROCHLORIDE
     Indication: COLITIS
     Dosage: 1 G, Q12 H
     Route: 042
  5. AZACTAM [Suspect]
     Active Substance: AZTREONAM
     Dosage: 1 G, 3X/DAY, (Q8 H)

REACTIONS (4)
  - Acute respiratory distress syndrome [Recovered/Resolved]
  - Drug ineffective [Recovered/Resolved]
  - Septic shock [Recovered/Resolved]
  - Pathogen resistance [Recovered/Resolved]
